FAERS Safety Report 4972455-5 (Version None)
Quarter: 2006Q2

REPORT INFORMATION
  Report Type: 
  Country: None (occurrence: None)
  Receive Date: 20060413
  Receipt Date: 20060202
  Transmission Date: 20061013
  Serious: Yes (Hospitalization, Disabling)
  Sender: FDA-Public Use
  Company Number: US-MERCK-0602USA01640

PATIENT
  Age: 40 Year
  Sex: Male
  Weight: 73 kg

DRUGS (1)
  1. VIOXX [Suspect]
     Indication: NERVE INJURY
     Route: 048
     Dates: start: 20020101, end: 20030101

REACTIONS (3)
  - BRAIN DAMAGE [None]
  - DEPRESSION [None]
  - THROMBOSIS [None]
